FAERS Safety Report 17501445 (Version 1)
Quarter: 2020Q1

REPORT INFORMATION
  Report Type: Spontaneous
  Country: US (occurrence: US)
  Receive Date: 20200304
  Receipt Date: 20200304
  Transmission Date: 20200409
  Serious: Yes (Hospitalization)
  Sender: FDA-Public Use
  Company Number: None

PATIENT
  Age: 64 Year
  Sex: Female
  Weight: 95 kg

DRUGS (22)
  1. ETANERCEPT [Concomitant]
     Active Substance: ETANERCEPT
     Dates: start: 20190611
  2. CARVEDILOL. [Concomitant]
     Active Substance: CARVEDILOL
     Dates: start: 20191113
  3. ALBUTEROL. [Concomitant]
     Active Substance: ALBUTEROL
     Dates: start: 20191122
  4. TIOTROPIUM [Concomitant]
     Active Substance: TIOTROPIUM
     Dates: start: 20181130
  5. SEVELAMER [Concomitant]
     Active Substance: SEVELAMER
     Dates: start: 20190522
  6. TIZANIDINE. [Concomitant]
     Active Substance: TIZANIDINE
     Dates: start: 20190724
  7. HYDRALAZINE [Concomitant]
     Active Substance: HYDRALAZINE HYDROCHLORIDE
     Dates: start: 20190225
  8. BYETTA [Concomitant]
     Active Substance: EXENATIDE
     Dates: start: 20190725
  9. TRAZODONE [Concomitant]
     Active Substance: TRAZODONE HYDROCHLORIDE
     Dates: start: 20190819
  10. WARFARIN [Suspect]
     Active Substance: WARFARIN
     Indication: ATRIAL FIBRILLATION
     Dosage: ?          OTHER FREQUENCY:7.5 OD EXCPT 5 WMF;?
     Route: 048
  11. FOLIC ACID. [Concomitant]
     Active Substance: FOLIC ACID
     Dates: start: 20190225
  12. SUMATRIPTAN. [Concomitant]
     Active Substance: SUMATRIPTAN
     Dates: start: 20190819
  13. BREO ELLIPTA [Concomitant]
     Active Substance: FLUTICASONE FUROATE\VILANTEROL TRIFENATATE
     Dates: start: 20181130
  14. LEFLUNOMIDE. [Concomitant]
     Active Substance: LEFLUNOMIDE
     Dates: start: 20191029
  15. BUPROPION. [Concomitant]
     Active Substance: BUPROPION
     Dates: start: 20190725
  16. METHOCARBAMOL. [Concomitant]
     Active Substance: METHOCARBAMOL
     Dates: start: 20190923
  17. OMEPRAZOLE. [Concomitant]
     Active Substance: OMEPRAZOLE
     Dates: start: 20200121
  18. PRAVASTATIN. [Concomitant]
     Active Substance: PRAVASTATIN
     Dates: start: 20190329
  19. ONDANSETRON [Concomitant]
     Active Substance: ONDANSETRON
     Dates: start: 20191015
  20. DILTAIZEM 180MG/24HR [Concomitant]
     Dates: start: 20190816
  21. HYDROXYZINE [Concomitant]
     Active Substance: HYDROXYZINE HYDROCHLORIDE
     Dates: start: 20190614
  22. FUROSEMIDE. [Concomitant]
     Active Substance: FUROSEMIDE
     Dates: start: 20190725

REACTIONS (6)
  - International normalised ratio increased [None]
  - Ecchymosis [None]
  - Fall [None]
  - Pain in extremity [None]
  - Haematoma muscle [None]
  - Haemoglobin decreased [None]

NARRATIVE: CASE EVENT DATE: 20190126
